FAERS Safety Report 22521370 (Version 5)
Quarter: 2025Q4

REPORT INFORMATION
  Report Type: Spontaneous
  Country: CA (occurrence: CA)
  Receive Date: 20230605
  Receipt Date: 20251111
  Transmission Date: 20260118
  Serious: Yes (Hospitalization, Other)
  Sender: MYLAN
  Company Number: CA-MYLANLABS-2023M1058725

PATIENT
  Age: 53 Year
  Sex: Female

DRUGS (280)
  1. VENLAFAXINE HCL [Interacting]
     Active Substance: VENLAFAXINE HYDROCHLORIDE
     Indication: Product used for unknown indication
     Dosage: 150 MILLIGRAM
  2. VENLAFAXINE HCL [Interacting]
     Active Substance: VENLAFAXINE HYDROCHLORIDE
     Dosage: 150 MILLIGRAM
     Route: 065
  3. VENLAFAXINE HCL [Interacting]
     Active Substance: VENLAFAXINE HYDROCHLORIDE
     Dosage: 150 MILLIGRAM
     Route: 065
  4. VENLAFAXINE HCL [Interacting]
     Active Substance: VENLAFAXINE HYDROCHLORIDE
     Dosage: 150 MILLIGRAM
  5. VARENICLINE [Suspect]
     Active Substance: VARENICLINE
     Indication: Product used for unknown indication
     Dosage: 0.5 MILLIGRAM, QD (1 EVERY 1 DAY)
  6. VARENICLINE [Suspect]
     Active Substance: VARENICLINE
     Dosage: 0.5 MILLIGRAM, QD (1 EVERY 1 DAY)
     Route: 065
  7. VARENICLINE [Suspect]
     Active Substance: VARENICLINE
     Dosage: 0.5 MILLIGRAM, QD (1 EVERY 1 DAY)
     Route: 065
  8. VARENICLINE [Suspect]
     Active Substance: VARENICLINE
     Dosage: 0.5 MILLIGRAM, QD (1 EVERY 1 DAY)
  9. VARENICLINE [Suspect]
     Active Substance: VARENICLINE
     Dosage: 150 MILLIGRAM
  10. VARENICLINE [Suspect]
     Active Substance: VARENICLINE
     Dosage: 150 MILLIGRAM
     Route: 065
  11. VARENICLINE [Suspect]
     Active Substance: VARENICLINE
     Dosage: 150 MILLIGRAM
  12. VARENICLINE [Suspect]
     Active Substance: VARENICLINE
     Dosage: 150 MILLIGRAM
     Route: 065
  13. VARENICLINE [Suspect]
     Active Substance: VARENICLINE
     Dosage: 1 MILLIGRAM, BID (1 EVERY .5 DAYS)
     Route: 065
  14. VARENICLINE [Suspect]
     Active Substance: VARENICLINE
     Dosage: 1 MILLIGRAM, BID (1 EVERY .5 DAYS)
     Route: 065
  15. VARENICLINE [Suspect]
     Active Substance: VARENICLINE
     Dosage: 1 MILLIGRAM, BID (1 EVERY .5 DAYS)
  16. VARENICLINE [Suspect]
     Active Substance: VARENICLINE
     Dosage: 1 MILLIGRAM, BID (1 EVERY .5 DAYS)
  17. ALCOHOL [Interacting]
     Active Substance: ALCOHOL
     Indication: Product used for unknown indication
     Dosage: UNK
  18. ALCOHOL [Interacting]
     Active Substance: ALCOHOL
     Dosage: UNK
     Route: 065
  19. ALCOHOL [Interacting]
     Active Substance: ALCOHOL
     Dosage: UNK
     Route: 065
  20. ALCOHOL [Interacting]
     Active Substance: ALCOHOL
     Dosage: UNK
  21. DIETARY SUPPLEMENT\PROBIOTICS [Suspect]
     Active Substance: DIETARY SUPPLEMENT\PROBIOTICS NOS
     Indication: Product used for unknown indication
     Dosage: 1 DOSAGE FORM, TID
     Route: 048
  22. DIETARY SUPPLEMENT\PROBIOTICS [Suspect]
     Active Substance: DIETARY SUPPLEMENT\PROBIOTICS NOS
     Dosage: 1 DOSAGE FORM, TID
  23. DIETARY SUPPLEMENT\PROBIOTICS [Suspect]
     Active Substance: DIETARY SUPPLEMENT\PROBIOTICS NOS
     Dosage: 1 DOSAGE FORM, TID
  24. DIETARY SUPPLEMENT\PROBIOTICS [Suspect]
     Active Substance: DIETARY SUPPLEMENT\PROBIOTICS NOS
     Dosage: 1 DOSAGE FORM, TID
     Route: 048
  25. DIETARY SUPPLEMENT\PROBIOTICS [Suspect]
     Active Substance: DIETARY SUPPLEMENT\PROBIOTICS NOS
     Dosage: UNK
  26. DIETARY SUPPLEMENT\PROBIOTICS [Suspect]
     Active Substance: DIETARY SUPPLEMENT\PROBIOTICS NOS
     Dosage: UNK
  27. DIETARY SUPPLEMENT\PROBIOTICS [Suspect]
     Active Substance: DIETARY SUPPLEMENT\PROBIOTICS NOS
     Dosage: UNK
     Route: 048
  28. DIETARY SUPPLEMENT\PROBIOTICS [Suspect]
     Active Substance: DIETARY SUPPLEMENT\PROBIOTICS NOS
     Dosage: UNK
     Route: 048
  29. DIETARY SUPPLEMENT\PROBIOTICS [Suspect]
     Active Substance: DIETARY SUPPLEMENT\PROBIOTICS NOS
     Dosage: 1 DOSAGE FORM, TID (3 EVERY 1 DAY)
     Route: 048
  30. DIETARY SUPPLEMENT\PROBIOTICS [Suspect]
     Active Substance: DIETARY SUPPLEMENT\PROBIOTICS NOS
     Dosage: 1 DOSAGE FORM, TID (3 EVERY 1 DAY)
  31. DIETARY SUPPLEMENT\PROBIOTICS [Suspect]
     Active Substance: DIETARY SUPPLEMENT\PROBIOTICS NOS
     Dosage: 1 DOSAGE FORM, TID (3 EVERY 1 DAY)
  32. DIETARY SUPPLEMENT\PROBIOTICS [Suspect]
     Active Substance: DIETARY SUPPLEMENT\PROBIOTICS NOS
     Dosage: 1 DOSAGE FORM, TID (3 EVERY 1 DAY)
     Route: 048
  33. BUDESONIDE\FORMOTEROL FUMARATE [Suspect]
     Active Substance: BUDESONIDE\FORMOTEROL FUMARATE
     Indication: Product used for unknown indication
     Dosage: 1 DOSAGE FORM, BID (2 EVERY 1 DAY)
     Route: 065
  34. BUDESONIDE\FORMOTEROL FUMARATE [Suspect]
     Active Substance: BUDESONIDE\FORMOTEROL FUMARATE
     Dosage: 1 DOSAGE FORM, BID (2 EVERY 1 DAY)
     Route: 065
  35. BUDESONIDE\FORMOTEROL FUMARATE [Suspect]
     Active Substance: BUDESONIDE\FORMOTEROL FUMARATE
     Dosage: 1 DOSAGE FORM, BID (2 EVERY 1 DAY)
  36. BUDESONIDE\FORMOTEROL FUMARATE [Suspect]
     Active Substance: BUDESONIDE\FORMOTEROL FUMARATE
     Dosage: 1 DOSAGE FORM, BID (2 EVERY 1 DAY)
  37. BUDESONIDE\FORMOTEROL FUMARATE [Suspect]
     Active Substance: BUDESONIDE\FORMOTEROL FUMARATE
     Dosage: 6.0 MICROGRAM, BID (1 EVERY 0.5 DAYS)
  38. BUDESONIDE\FORMOTEROL FUMARATE [Suspect]
     Active Substance: BUDESONIDE\FORMOTEROL FUMARATE
     Dosage: 6.0 MICROGRAM, BID (1 EVERY 0.5 DAYS)
  39. BUDESONIDE\FORMOTEROL FUMARATE [Suspect]
     Active Substance: BUDESONIDE\FORMOTEROL FUMARATE
     Dosage: 6.0 MICROGRAM, BID (1 EVERY 0.5 DAYS)
     Route: 065
  40. BUDESONIDE\FORMOTEROL FUMARATE [Suspect]
     Active Substance: BUDESONIDE\FORMOTEROL FUMARATE
     Dosage: 6.0 MICROGRAM, BID (1 EVERY 0.5 DAYS)
     Route: 065
  41. BUDESONIDE\FORMOTEROL FUMARATE [Suspect]
     Active Substance: BUDESONIDE\FORMOTEROL FUMARATE
     Dosage: 200 MICROGRAM, BID (1 EVERY 0.5 DAYS)
     Route: 065
  42. BUDESONIDE\FORMOTEROL FUMARATE [Suspect]
     Active Substance: BUDESONIDE\FORMOTEROL FUMARATE
     Dosage: 200 MICROGRAM, BID (1 EVERY 0.5 DAYS)
  43. BUDESONIDE\FORMOTEROL FUMARATE [Suspect]
     Active Substance: BUDESONIDE\FORMOTEROL FUMARATE
     Dosage: 200 MICROGRAM, BID (1 EVERY 0.5 DAYS)
  44. BUDESONIDE\FORMOTEROL FUMARATE [Suspect]
     Active Substance: BUDESONIDE\FORMOTEROL FUMARATE
     Dosage: 200 MICROGRAM, BID (1 EVERY 0.5 DAYS)
     Route: 065
  45. BUDESONIDE\FORMOTEROL FUMARATE [Suspect]
     Active Substance: BUDESONIDE\FORMOTEROL FUMARATE
     Dosage: UNK
     Route: 065
  46. BUDESONIDE\FORMOTEROL FUMARATE [Suspect]
     Active Substance: BUDESONIDE\FORMOTEROL FUMARATE
     Dosage: UNK
     Route: 065
  47. BUDESONIDE\FORMOTEROL FUMARATE [Suspect]
     Active Substance: BUDESONIDE\FORMOTEROL FUMARATE
     Dosage: UNK
  48. BUDESONIDE\FORMOTEROL FUMARATE [Suspect]
     Active Substance: BUDESONIDE\FORMOTEROL FUMARATE
     Dosage: UNK
  49. BUDESONIDE\FORMOTEROL FUMARATE [Suspect]
     Active Substance: BUDESONIDE\FORMOTEROL FUMARATE
     Dosage: 6 MILLIGRAM, BID (2 EVERY 1 DAY)
  50. BUDESONIDE\FORMOTEROL FUMARATE [Suspect]
     Active Substance: BUDESONIDE\FORMOTEROL FUMARATE
     Dosage: 6 MILLIGRAM, BID (2 EVERY 1 DAY)
     Route: 065
  51. BUDESONIDE\FORMOTEROL FUMARATE [Suspect]
     Active Substance: BUDESONIDE\FORMOTEROL FUMARATE
     Dosage: 6 MILLIGRAM, BID (2 EVERY 1 DAY)
     Route: 065
  52. BUDESONIDE\FORMOTEROL FUMARATE [Suspect]
     Active Substance: BUDESONIDE\FORMOTEROL FUMARATE
     Dosage: 6 MILLIGRAM, BID (2 EVERY 1 DAY)
  53. BUDESONIDE\FORMOTEROL FUMARATE [Suspect]
     Active Substance: BUDESONIDE\FORMOTEROL FUMARATE
     Dosage: 200 MILLIGRAM, BID (2 EVERY 1 DAY)
     Route: 065
  54. BUDESONIDE\FORMOTEROL FUMARATE [Suspect]
     Active Substance: BUDESONIDE\FORMOTEROL FUMARATE
     Dosage: 200 MILLIGRAM, BID (2 EVERY 1 DAY)
  55. BUDESONIDE\FORMOTEROL FUMARATE [Suspect]
     Active Substance: BUDESONIDE\FORMOTEROL FUMARATE
     Dosage: 200 MILLIGRAM, BID (2 EVERY 1 DAY)
  56. BUDESONIDE\FORMOTEROL FUMARATE [Suspect]
     Active Substance: BUDESONIDE\FORMOTEROL FUMARATE
     Dosage: 200 MILLIGRAM, BID (2 EVERY 1 DAY)
     Route: 065
  57. BUDESONIDE\FORMOTEROL FUMARATE [Suspect]
     Active Substance: BUDESONIDE\FORMOTEROL FUMARATE
     Dosage: 2.0 MILLIGRAM, BID
     Route: 065
  58. BUDESONIDE\FORMOTEROL FUMARATE [Suspect]
     Active Substance: BUDESONIDE\FORMOTEROL FUMARATE
     Dosage: 2.0 MILLIGRAM, BID
  59. BUDESONIDE\FORMOTEROL FUMARATE [Suspect]
     Active Substance: BUDESONIDE\FORMOTEROL FUMARATE
     Dosage: 2.0 MILLIGRAM, BID
  60. BUDESONIDE\FORMOTEROL FUMARATE [Suspect]
     Active Substance: BUDESONIDE\FORMOTEROL FUMARATE
     Dosage: 2.0 MILLIGRAM, BID
     Route: 065
  61. BUDESONIDE\FORMOTEROL FUMARATE [Suspect]
     Active Substance: BUDESONIDE\FORMOTEROL FUMARATE
     Dosage: 1 DOSAGE FORM, BID (2 EVERY 1 DAY)
     Route: 048
  62. BUDESONIDE\FORMOTEROL FUMARATE [Suspect]
     Active Substance: BUDESONIDE\FORMOTEROL FUMARATE
     Dosage: 1 DOSAGE FORM, BID (2 EVERY 1 DAY)
     Route: 048
  63. BUDESONIDE\FORMOTEROL FUMARATE [Suspect]
     Active Substance: BUDESONIDE\FORMOTEROL FUMARATE
     Dosage: 1 DOSAGE FORM, BID (2 EVERY 1 DAY)
  64. BUDESONIDE\FORMOTEROL FUMARATE [Suspect]
     Active Substance: BUDESONIDE\FORMOTEROL FUMARATE
     Dosage: 1 DOSAGE FORM, BID (2 EVERY 1 DAY)
  65. LINOLEIC ACID, CONJUGATED [Suspect]
     Active Substance: LINOLEIC ACID, CONJUGATED
     Indication: Product used for unknown indication
     Dosage: 1 DOSAGE FORM, TID
     Route: 048
  66. LINOLEIC ACID, CONJUGATED [Suspect]
     Active Substance: LINOLEIC ACID, CONJUGATED
     Dosage: 1 DOSAGE FORM, TID
  67. LINOLEIC ACID, CONJUGATED [Suspect]
     Active Substance: LINOLEIC ACID, CONJUGATED
     Dosage: 1 DOSAGE FORM, TID
  68. LINOLEIC ACID, CONJUGATED [Suspect]
     Active Substance: LINOLEIC ACID, CONJUGATED
     Dosage: 1 DOSAGE FORM, TID
     Route: 048
  69. LINOLEIC ACID, CONJUGATED [Suspect]
     Active Substance: LINOLEIC ACID, CONJUGATED
     Dosage: 1 DOSAGE FORM, TID (3 EVERY 1 DAY)
     Route: 048
  70. LINOLEIC ACID, CONJUGATED [Suspect]
     Active Substance: LINOLEIC ACID, CONJUGATED
     Dosage: 1 DOSAGE FORM, TID (3 EVERY 1 DAY)
  71. LINOLEIC ACID, CONJUGATED [Suspect]
     Active Substance: LINOLEIC ACID, CONJUGATED
     Dosage: 1 DOSAGE FORM, TID (3 EVERY 1 DAY)
  72. LINOLEIC ACID, CONJUGATED [Suspect]
     Active Substance: LINOLEIC ACID, CONJUGATED
     Dosage: 1 DOSAGE FORM, TID (3 EVERY 1 DAY)
     Route: 048
  73. ESTRADIOL [Suspect]
     Active Substance: ESTRADIOL
     Indication: Product used for unknown indication
     Dosage: UNK (1 EVERY 2 MONTHS)
     Route: 062
  74. ESTRADIOL [Suspect]
     Active Substance: ESTRADIOL
     Dosage: UNK (1 EVERY 2 MONTHS)
  75. ESTRADIOL [Suspect]
     Active Substance: ESTRADIOL
     Dosage: UNK (1 EVERY 2 MONTHS)
  76. ESTRADIOL [Suspect]
     Active Substance: ESTRADIOL
     Dosage: UNK (1 EVERY 2 MONTHS)
     Route: 062
  77. ESTRADIOL [Suspect]
     Active Substance: ESTRADIOL
     Dosage: 50 MILLIGRAM, QD (1 EVERY 1 DAY)
  78. ESTRADIOL [Suspect]
     Active Substance: ESTRADIOL
     Dosage: 50 MILLIGRAM, QD (1 EVERY 1 DAY)
  79. ESTRADIOL [Suspect]
     Active Substance: ESTRADIOL
     Dosage: 50 MILLIGRAM, QD (1 EVERY 1 DAY)
     Route: 062
  80. ESTRADIOL [Suspect]
     Active Substance: ESTRADIOL
     Dosage: 50 MILLIGRAM, QD (1 EVERY 1 DAY)
     Route: 062
  81. ESTRADIOL [Suspect]
     Active Substance: ESTRADIOL
     Dosage: 1 DOSAGE FORM
     Route: 062
  82. ESTRADIOL [Suspect]
     Active Substance: ESTRADIOL
     Dosage: 1 DOSAGE FORM
  83. ESTRADIOL [Suspect]
     Active Substance: ESTRADIOL
     Dosage: 1 DOSAGE FORM
  84. ESTRADIOL [Suspect]
     Active Substance: ESTRADIOL
     Dosage: 1 DOSAGE FORM
     Route: 062
  85. FISH OIL [Suspect]
     Active Substance: FISH OIL
     Indication: Product used for unknown indication
     Dosage: 1 DOSAGE FORM, BID ( 600 EPA/300 DHA)
     Route: 048
  86. FISH OIL [Suspect]
     Active Substance: FISH OIL
     Dosage: 1 DOSAGE FORM, BID ( 600 EPA/300 DHA)
  87. FISH OIL [Suspect]
     Active Substance: FISH OIL
     Dosage: 1 DOSAGE FORM, BID ( 600 EPA/300 DHA)
  88. FISH OIL [Suspect]
     Active Substance: FISH OIL
     Dosage: 1 DOSAGE FORM, BID ( 600 EPA/300 DHA)
     Route: 048
  89. FISH OIL [Suspect]
     Active Substance: FISH OIL
     Dosage: UNK, TID (1 EVERY .3 DAYS)
     Route: 048
  90. FISH OIL [Suspect]
     Active Substance: FISH OIL
     Dosage: UNK, TID (1 EVERY .3 DAYS)
  91. FISH OIL [Suspect]
     Active Substance: FISH OIL
     Dosage: UNK, TID (1 EVERY .3 DAYS)
  92. FISH OIL [Suspect]
     Active Substance: FISH OIL
     Dosage: UNK, TID (1 EVERY .3 DAYS)
     Route: 048
  93. LORAZEPAM [Suspect]
     Active Substance: LORAZEPAM
     Indication: Product used for unknown indication
     Dosage: 1 MILLIGRAM, QD
     Route: 065
  94. LORAZEPAM [Suspect]
     Active Substance: LORAZEPAM
     Dosage: 1 MILLIGRAM, QD
  95. LORAZEPAM [Suspect]
     Active Substance: LORAZEPAM
     Dosage: 1 MILLIGRAM, QD
  96. LORAZEPAM [Suspect]
     Active Substance: LORAZEPAM
     Dosage: 1 MILLIGRAM, QD
     Route: 065
  97. LORAZEPAM [Suspect]
     Active Substance: LORAZEPAM
     Dosage: 1 MILLIGRAM, QD
     Route: 065
  98. LORAZEPAM [Suspect]
     Active Substance: LORAZEPAM
     Dosage: 1 MILLIGRAM, QD
  99. LORAZEPAM [Suspect]
     Active Substance: LORAZEPAM
     Dosage: 1 MILLIGRAM, QD
  100. LORAZEPAM [Suspect]
     Active Substance: LORAZEPAM
     Dosage: 1 MILLIGRAM, QD
     Route: 065
  101. DIMETHYL SULFONE [Suspect]
     Active Substance: DIMETHYL SULFONE
     Indication: Product used for unknown indication
     Dosage: 1000 MILLIGRAM, TID
     Route: 065
  102. DIMETHYL SULFONE [Suspect]
     Active Substance: DIMETHYL SULFONE
     Dosage: 1000 MILLIGRAM, TID
  103. DIMETHYL SULFONE [Suspect]
     Active Substance: DIMETHYL SULFONE
     Dosage: 1000 MILLIGRAM, TID
  104. DIMETHYL SULFONE [Suspect]
     Active Substance: DIMETHYL SULFONE
     Dosage: 1000 MILLIGRAM, TID
     Route: 065
  105. DIMETHYL SULFONE [Suspect]
     Active Substance: DIMETHYL SULFONE
     Dosage: 1000 MILLIGRAM
     Route: 065
  106. DIMETHYL SULFONE [Suspect]
     Active Substance: DIMETHYL SULFONE
     Dosage: 1000 MILLIGRAM
  107. DIMETHYL SULFONE [Suspect]
     Active Substance: DIMETHYL SULFONE
     Dosage: 1000 MILLIGRAM
  108. DIMETHYL SULFONE [Suspect]
     Active Substance: DIMETHYL SULFONE
     Dosage: 1000 MILLIGRAM
     Route: 065
  109. PROGESTERONE [Suspect]
     Active Substance: PROGESTERONE
     Indication: Product used for unknown indication
     Dosage: 100 MILLIGRAM
     Route: 065
  110. PROGESTERONE [Suspect]
     Active Substance: PROGESTERONE
     Dosage: 100 MILLIGRAM
  111. PROGESTERONE [Suspect]
     Active Substance: PROGESTERONE
     Dosage: 100 MILLIGRAM
  112. PROGESTERONE [Suspect]
     Active Substance: PROGESTERONE
     Dosage: 100 MILLIGRAM
     Route: 065
  113. PROGESTERONE [Suspect]
     Active Substance: PROGESTERONE
     Dosage: UNK
     Route: 048
  114. PROGESTERONE [Suspect]
     Active Substance: PROGESTERONE
     Dosage: UNK
  115. PROGESTERONE [Suspect]
     Active Substance: PROGESTERONE
     Dosage: UNK
  116. PROGESTERONE [Suspect]
     Active Substance: PROGESTERONE
     Dosage: UNK
     Route: 048
  117. PROGESTERONE [Suspect]
     Active Substance: PROGESTERONE
     Dosage: 100 MILLIGRAM, QD
     Route: 065
  118. PROGESTERONE [Suspect]
     Active Substance: PROGESTERONE
     Dosage: 100 MILLIGRAM, QD
  119. PROGESTERONE [Suspect]
     Active Substance: PROGESTERONE
     Dosage: 100 MILLIGRAM, QD
  120. PROGESTERONE [Suspect]
     Active Substance: PROGESTERONE
     Dosage: 100 MILLIGRAM, QD
     Route: 065
  121. PROGESTERONE [Suspect]
     Active Substance: PROGESTERONE
     Dosage: 100 MILLIGRAM, QD (EVERY 1 DAY)
     Route: 048
  122. PROGESTERONE [Suspect]
     Active Substance: PROGESTERONE
     Dosage: 100 MILLIGRAM, QD (EVERY 1 DAY)
  123. PROGESTERONE [Suspect]
     Active Substance: PROGESTERONE
     Dosage: 100 MILLIGRAM, QD (EVERY 1 DAY)
  124. PROGESTERONE [Suspect]
     Active Substance: PROGESTERONE
     Dosage: 100 MILLIGRAM, QD (EVERY 1 DAY)
     Route: 048
  125. SOMATROPIN [Suspect]
     Active Substance: SOMATROPIN
     Indication: Product used for unknown indication
     Dosage: UNK
     Route: 065
  126. SOMATROPIN [Suspect]
     Active Substance: SOMATROPIN
     Dosage: UNK
  127. SOMATROPIN [Suspect]
     Active Substance: SOMATROPIN
     Dosage: UNK
  128. SOMATROPIN [Suspect]
     Active Substance: SOMATROPIN
     Dosage: UNK
     Route: 065
  129. SOMATROPIN [Suspect]
     Active Substance: SOMATROPIN
     Dosage: UNK
  130. SOMATROPIN [Suspect]
     Active Substance: SOMATROPIN
     Dosage: UNK
  131. SOMATROPIN [Suspect]
     Active Substance: SOMATROPIN
     Dosage: UNK
     Route: 065
  132. SOMATROPIN [Suspect]
     Active Substance: SOMATROPIN
     Dosage: UNK
     Route: 065
  133. SOMATROPIN [Suspect]
     Active Substance: SOMATROPIN
     Dosage: UNK
     Route: 062
  134. SOMATROPIN [Suspect]
     Active Substance: SOMATROPIN
     Dosage: UNK
  135. SOMATROPIN [Suspect]
     Active Substance: SOMATROPIN
     Dosage: UNK
  136. SOMATROPIN [Suspect]
     Active Substance: SOMATROPIN
     Dosage: UNK
     Route: 062
  137. VITAMIN D [Suspect]
     Active Substance: VITAMIN D NOS
     Indication: Product used for unknown indication
     Dosage: 1000 INTERNATIONAL UNIT, QD
  138. VITAMIN D [Suspect]
     Active Substance: VITAMIN D NOS
     Dosage: 1000 INTERNATIONAL UNIT, QD
     Route: 048
  139. VITAMIN D [Suspect]
     Active Substance: VITAMIN D NOS
     Dosage: 1000 INTERNATIONAL UNIT, QD
     Route: 048
  140. VITAMIN D [Suspect]
     Active Substance: VITAMIN D NOS
     Dosage: 1000 INTERNATIONAL UNIT, QD
  141. BIFIDOBACTERIUM LONGUM [Suspect]
     Active Substance: BIFIDOBACTERIUM LONGUM
     Indication: Product used for unknown indication
     Dosage: UNK
  142. BIFIDOBACTERIUM LONGUM [Suspect]
     Active Substance: BIFIDOBACTERIUM LONGUM
     Dosage: UNK
     Route: 048
  143. BIFIDOBACTERIUM LONGUM [Suspect]
     Active Substance: BIFIDOBACTERIUM LONGUM
     Dosage: UNK
     Route: 048
  144. BIFIDOBACTERIUM LONGUM [Suspect]
     Active Substance: BIFIDOBACTERIUM LONGUM
     Dosage: UNK
  145. DOCONEXENT [Suspect]
     Active Substance: DOCONEXENT
     Indication: Product used for unknown indication
     Dosage: UNK
     Route: 065
  146. DOCONEXENT [Suspect]
     Active Substance: DOCONEXENT
     Dosage: UNK
  147. DOCONEXENT [Suspect]
     Active Substance: DOCONEXENT
     Dosage: UNK
  148. DOCONEXENT [Suspect]
     Active Substance: DOCONEXENT
     Dosage: UNK
     Route: 065
  149. DOCONEXENT [Suspect]
     Active Substance: DOCONEXENT
     Dosage: 120 MILLIGRAM, BID (1 EVERY 0.5 DAY)
  150. DOCONEXENT [Suspect]
     Active Substance: DOCONEXENT
     Dosage: 120 MILLIGRAM, BID (1 EVERY 0.5 DAY)
  151. DOCONEXENT [Suspect]
     Active Substance: DOCONEXENT
     Dosage: 120 MILLIGRAM, BID (1 EVERY 0.5 DAY)
     Route: 048
  152. DOCONEXENT [Suspect]
     Active Substance: DOCONEXENT
     Dosage: 120 MILLIGRAM, BID (1 EVERY 0.5 DAY)
     Route: 048
  153. DOCONEXENT [Suspect]
     Active Substance: DOCONEXENT
     Dosage: 120 MILLIGRAM, BID (2 EVERY 1 DAY)
     Route: 048
  154. DOCONEXENT [Suspect]
     Active Substance: DOCONEXENT
     Dosage: 120 MILLIGRAM, BID (2 EVERY 1 DAY)
  155. DOCONEXENT [Suspect]
     Active Substance: DOCONEXENT
     Dosage: 120 MILLIGRAM, BID (2 EVERY 1 DAY)
  156. DOCONEXENT [Suspect]
     Active Substance: DOCONEXENT
     Dosage: 120 MILLIGRAM, BID (2 EVERY 1 DAY)
     Route: 048
  157. ICOSAPENT [Suspect]
     Active Substance: ICOSAPENT
     Indication: Product used for unknown indication
     Dosage: UNK
     Route: 048
  158. ICOSAPENT [Suspect]
     Active Substance: ICOSAPENT
     Dosage: UNK
  159. ICOSAPENT [Suspect]
     Active Substance: ICOSAPENT
     Dosage: UNK
  160. ICOSAPENT [Suspect]
     Active Substance: ICOSAPENT
     Dosage: UNK
     Route: 048
  161. ICOSAPENT [Suspect]
     Active Substance: ICOSAPENT
     Dosage: 180 MILLIGRAM, BID (1 EVERY .5 DAYS)
  162. ICOSAPENT [Suspect]
     Active Substance: ICOSAPENT
     Dosage: 180 MILLIGRAM, BID (1 EVERY .5 DAYS)
  163. ICOSAPENT [Suspect]
     Active Substance: ICOSAPENT
     Dosage: 180 MILLIGRAM, BID (1 EVERY .5 DAYS)
     Route: 048
  164. ICOSAPENT [Suspect]
     Active Substance: ICOSAPENT
     Dosage: 180 MILLIGRAM, BID (1 EVERY .5 DAYS)
     Route: 048
  165. ICOSAPENT [Suspect]
     Active Substance: ICOSAPENT
     Dosage: 180 MILLIGRAM, BID (2 EVERY 1 DAY)
     Route: 048
  166. ICOSAPENT [Suspect]
     Active Substance: ICOSAPENT
     Dosage: 180 MILLIGRAM, BID (2 EVERY 1 DAY)
  167. ICOSAPENT [Suspect]
     Active Substance: ICOSAPENT
     Dosage: 180 MILLIGRAM, BID (2 EVERY 1 DAY)
  168. ICOSAPENT [Suspect]
     Active Substance: ICOSAPENT
     Dosage: 180 MILLIGRAM, BID (2 EVERY 1 DAY)
     Route: 048
  169. ERGOCALCIFEROL [Suspect]
     Active Substance: ERGOCALCIFEROL
     Indication: Product used for unknown indication
     Dosage: 1000 INTERNATIONAL UNIT
     Route: 048
  170. ERGOCALCIFEROL [Suspect]
     Active Substance: ERGOCALCIFEROL
     Dosage: 1000 INTERNATIONAL UNIT
  171. ERGOCALCIFEROL [Suspect]
     Active Substance: ERGOCALCIFEROL
     Dosage: 1000 INTERNATIONAL UNIT
  172. ERGOCALCIFEROL [Suspect]
     Active Substance: ERGOCALCIFEROL
     Dosage: 1000 INTERNATIONAL UNIT
     Route: 048
  173. ERGOCALCIFEROL [Suspect]
     Active Substance: ERGOCALCIFEROL
     Dosage: 1000 INTERNATIONAL UNIT, QD ( 1 EVERY 1 DAYS)
     Route: 048
  174. ERGOCALCIFEROL [Suspect]
     Active Substance: ERGOCALCIFEROL
     Dosage: 1000 INTERNATIONAL UNIT, QD ( 1 EVERY 1 DAYS)
  175. ERGOCALCIFEROL [Suspect]
     Active Substance: ERGOCALCIFEROL
     Dosage: 1000 INTERNATIONAL UNIT, QD ( 1 EVERY 1 DAYS)
  176. ERGOCALCIFEROL [Suspect]
     Active Substance: ERGOCALCIFEROL
     Dosage: 1000 INTERNATIONAL UNIT, QD ( 1 EVERY 1 DAYS)
     Route: 048
  177. LACTOBACILLUS ACIDOPHILUS [Suspect]
     Active Substance: LACTOBACILLUS ACIDOPHILUS
     Indication: Product used for unknown indication
     Dosage: UNK
     Route: 048
  178. LACTOBACILLUS ACIDOPHILUS [Suspect]
     Active Substance: LACTOBACILLUS ACIDOPHILUS
     Dosage: UNK
     Route: 048
  179. LACTOBACILLUS ACIDOPHILUS [Suspect]
     Active Substance: LACTOBACILLUS ACIDOPHILUS
     Dosage: UNK
  180. LACTOBACILLUS ACIDOPHILUS [Suspect]
     Active Substance: LACTOBACILLUS ACIDOPHILUS
     Dosage: UNK
  181. LACTOBACILLUS ACIDOPHILUS [Suspect]
     Active Substance: LACTOBACILLUS ACIDOPHILUS
     Dosage: UNK, TID (1 EVERY .3 DAYS)
     Route: 048
  182. LACTOBACILLUS ACIDOPHILUS [Suspect]
     Active Substance: LACTOBACILLUS ACIDOPHILUS
     Dosage: UNK, TID (1 EVERY .3 DAYS)
  183. LACTOBACILLUS ACIDOPHILUS [Suspect]
     Active Substance: LACTOBACILLUS ACIDOPHILUS
     Dosage: UNK, TID (1 EVERY .3 DAYS)
  184. LACTOBACILLUS ACIDOPHILUS [Suspect]
     Active Substance: LACTOBACILLUS ACIDOPHILUS
     Dosage: UNK, TID (1 EVERY .3 DAYS)
     Route: 048
  185. LACTOBACILLUS ACIDOPHILUS [Suspect]
     Active Substance: LACTOBACILLUS ACIDOPHILUS
     Dosage: 1 DOSAGE FORM, TID
     Route: 048
  186. LACTOBACILLUS ACIDOPHILUS [Suspect]
     Active Substance: LACTOBACILLUS ACIDOPHILUS
     Dosage: 1 DOSAGE FORM, TID
     Route: 048
  187. LACTOBACILLUS ACIDOPHILUS [Suspect]
     Active Substance: LACTOBACILLUS ACIDOPHILUS
     Dosage: 1 DOSAGE FORM, TID
  188. LACTOBACILLUS ACIDOPHILUS [Suspect]
     Active Substance: LACTOBACILLUS ACIDOPHILUS
     Dosage: 1 DOSAGE FORM, TID
  189. LACTOBACILLUS ACIDOPHILUS [Suspect]
     Active Substance: LACTOBACILLUS ACIDOPHILUS
     Dosage: 1 MILLIGRAM, TID (3 EVERY 1 DAY)
     Route: 048
  190. LACTOBACILLUS ACIDOPHILUS [Suspect]
     Active Substance: LACTOBACILLUS ACIDOPHILUS
     Dosage: 1 MILLIGRAM, TID (3 EVERY 1 DAY)
  191. LACTOBACILLUS ACIDOPHILUS [Suspect]
     Active Substance: LACTOBACILLUS ACIDOPHILUS
     Dosage: 1 MILLIGRAM, TID (3 EVERY 1 DAY)
  192. LACTOBACILLUS ACIDOPHILUS [Suspect]
     Active Substance: LACTOBACILLUS ACIDOPHILUS
     Dosage: 1 MILLIGRAM, TID (3 EVERY 1 DAY)
     Route: 048
  193. THIOCTIC ACID [Suspect]
     Active Substance: THIOCTIC ACID
     Indication: Product used for unknown indication
     Dosage: UNK
     Route: 065
  194. THIOCTIC ACID [Suspect]
     Active Substance: THIOCTIC ACID
     Dosage: UNK
  195. THIOCTIC ACID [Suspect]
     Active Substance: THIOCTIC ACID
     Dosage: UNK
  196. THIOCTIC ACID [Suspect]
     Active Substance: THIOCTIC ACID
     Dosage: UNK
     Route: 065
  197. THIOCTIC ACID [Suspect]
     Active Substance: THIOCTIC ACID
     Dosage: 3.75 MILLIGRAM
  198. THIOCTIC ACID [Suspect]
     Active Substance: THIOCTIC ACID
     Dosage: 3.75 MILLIGRAM
  199. THIOCTIC ACID [Suspect]
     Active Substance: THIOCTIC ACID
     Dosage: 3.75 MILLIGRAM
     Route: 065
  200. THIOCTIC ACID [Suspect]
     Active Substance: THIOCTIC ACID
     Dosage: 3.75 MILLIGRAM
     Route: 065
  201. THIOCTIC ACID [Suspect]
     Active Substance: THIOCTIC ACID
     Dosage: 3.75 MILLIGRAM, QD (1 EVERY 1 DAY)
     Route: 065
  202. THIOCTIC ACID [Suspect]
     Active Substance: THIOCTIC ACID
     Dosage: 3.75 MILLIGRAM, QD (1 EVERY 1 DAY)
  203. THIOCTIC ACID [Suspect]
     Active Substance: THIOCTIC ACID
     Dosage: 3.75 MILLIGRAM, QD (1 EVERY 1 DAY)
  204. THIOCTIC ACID [Suspect]
     Active Substance: THIOCTIC ACID
     Dosage: 3.75 MILLIGRAM, QD (1 EVERY 1 DAY)
     Route: 065
  205. UBIDECARENONE [Suspect]
     Active Substance: UBIDECARENONE
     Indication: Product used for unknown indication
     Dosage: UNK
     Route: 065
  206. UBIDECARENONE [Suspect]
     Active Substance: UBIDECARENONE
     Dosage: UNK
  207. UBIDECARENONE [Suspect]
     Active Substance: UBIDECARENONE
     Dosage: UNK
  208. UBIDECARENONE [Suspect]
     Active Substance: UBIDECARENONE
     Dosage: UNK
     Route: 065
  209. UBIDECARENONE [Suspect]
     Active Substance: UBIDECARENONE
     Dosage: 3.75 MILLIGRAM
  210. UBIDECARENONE [Suspect]
     Active Substance: UBIDECARENONE
     Dosage: 3.75 MILLIGRAM
  211. UBIDECARENONE [Suspect]
     Active Substance: UBIDECARENONE
     Dosage: 3.75 MILLIGRAM
     Route: 065
  212. UBIDECARENONE [Suspect]
     Active Substance: UBIDECARENONE
     Dosage: 3.75 MILLIGRAM
     Route: 065
  213. UBIDECARENONE [Suspect]
     Active Substance: UBIDECARENONE
     Dosage: 3.75 MILLIGRAM
     Route: 048
  214. UBIDECARENONE [Suspect]
     Active Substance: UBIDECARENONE
     Dosage: 3.75 MILLIGRAM
  215. UBIDECARENONE [Suspect]
     Active Substance: UBIDECARENONE
     Dosage: 3.75 MILLIGRAM
  216. UBIDECARENONE [Suspect]
     Active Substance: UBIDECARENONE
     Dosage: 3.75 MILLIGRAM
     Route: 048
  217. VITAMIN A [Suspect]
     Active Substance: VITAMIN A
     Indication: Product used for unknown indication
     Dosage: UNK
     Route: 048
  218. VITAMIN A [Suspect]
     Active Substance: VITAMIN A
     Dosage: UNK
  219. VITAMIN A [Suspect]
     Active Substance: VITAMIN A
     Dosage: UNK
  220. VITAMIN A [Suspect]
     Active Substance: VITAMIN A
     Dosage: UNK
     Route: 048
  221. VITAMIN A [Suspect]
     Active Substance: VITAMIN A
     Dosage: 188 MILLIGRAM, BID (1 EVERY .5 DAYS)
  222. VITAMIN A [Suspect]
     Active Substance: VITAMIN A
     Dosage: 188 MILLIGRAM, BID (1 EVERY .5 DAYS)
  223. VITAMIN A [Suspect]
     Active Substance: VITAMIN A
     Dosage: 188 MILLIGRAM, BID (1 EVERY .5 DAYS)
     Route: 065
  224. VITAMIN A [Suspect]
     Active Substance: VITAMIN A
     Dosage: 188 MILLIGRAM, BID (1 EVERY .5 DAYS)
     Route: 065
  225. VITAMIN A [Suspect]
     Active Substance: VITAMIN A
     Dosage: 188 MILLIGRAM, BID (2 EVERY 1 DAY)
     Route: 065
  226. VITAMIN A [Suspect]
     Active Substance: VITAMIN A
     Dosage: 188 MILLIGRAM, BID (2 EVERY 1 DAY)
  227. VITAMIN A [Suspect]
     Active Substance: VITAMIN A
     Dosage: 188 MILLIGRAM, BID (2 EVERY 1 DAY)
  228. VITAMIN A [Suspect]
     Active Substance: VITAMIN A
     Dosage: 188 MILLIGRAM, BID (2 EVERY 1 DAY)
     Route: 065
  229. VITAMIN C [Suspect]
     Active Substance: ASCORBIC ACID
     Indication: Product used for unknown indication
     Dosage: UNK
  230. VITAMIN C [Suspect]
     Active Substance: ASCORBIC ACID
     Dosage: UNK
     Route: 048
  231. VITAMIN C [Suspect]
     Active Substance: ASCORBIC ACID
     Dosage: UNK
     Route: 048
  232. VITAMIN C [Suspect]
     Active Substance: ASCORBIC ACID
     Dosage: UNK
  233. .ALPHA.-TOCOPHEROL [Suspect]
     Active Substance: .ALPHA.-TOCOPHEROL
     Indication: Product used for unknown indication
     Dosage: UNK
     Route: 065
  234. .ALPHA.-TOCOPHEROL [Suspect]
     Active Substance: .ALPHA.-TOCOPHEROL
     Dosage: UNK
  235. .ALPHA.-TOCOPHEROL [Suspect]
     Active Substance: .ALPHA.-TOCOPHEROL
     Dosage: UNK
  236. .ALPHA.-TOCOPHEROL [Suspect]
     Active Substance: .ALPHA.-TOCOPHEROL
     Dosage: UNK
     Route: 065
  237. .ALPHA.-TOCOPHEROL [Suspect]
     Active Substance: .ALPHA.-TOCOPHEROL
     Dosage: UNK
     Route: 048
  238. .ALPHA.-TOCOPHEROL [Suspect]
     Active Substance: .ALPHA.-TOCOPHEROL
     Dosage: UNK
  239. .ALPHA.-TOCOPHEROL [Suspect]
     Active Substance: .ALPHA.-TOCOPHEROL
     Dosage: UNK
  240. .ALPHA.-TOCOPHEROL [Suspect]
     Active Substance: .ALPHA.-TOCOPHEROL
     Dosage: UNK
     Route: 048
  241. VITAMIN C [Suspect]
     Active Substance: ASCORBIC ACID
     Indication: Product used for unknown indication
     Dosage: 15 MILLIGRAM, BID (1 EVERY .5 DAYS)
     Route: 048
  242. VITAMIN C [Suspect]
     Active Substance: ASCORBIC ACID
     Dosage: 15 MILLIGRAM, BID (1 EVERY .5 DAYS)
  243. VITAMIN C [Suspect]
     Active Substance: ASCORBIC ACID
     Dosage: 15 MILLIGRAM, BID (1 EVERY .5 DAYS)
  244. VITAMIN C [Suspect]
     Active Substance: ASCORBIC ACID
     Dosage: 15 MILLIGRAM, BID (1 EVERY .5 DAYS)
     Route: 048
  245. VITAMIN C [Suspect]
     Active Substance: ASCORBIC ACID
     Dosage: 15 MILLIGRAM, BID (2 EVERY 1 DAYS)
     Route: 048
  246. VITAMIN C [Suspect]
     Active Substance: ASCORBIC ACID
     Dosage: 15 MILLIGRAM, BID (2 EVERY 1 DAYS)
  247. VITAMIN C [Suspect]
     Active Substance: ASCORBIC ACID
     Dosage: 15 MILLIGRAM, BID (2 EVERY 1 DAYS)
  248. VITAMIN C [Suspect]
     Active Substance: ASCORBIC ACID
     Dosage: 15 MILLIGRAM, BID (2 EVERY 1 DAYS)
     Route: 048
  249. LINOLEIC ACID [Suspect]
     Active Substance: LINOLEIC ACID
     Indication: Product used for unknown indication
     Dosage: 1 EVERY .3 DAYS
  250. LINOLEIC ACID [Suspect]
     Active Substance: LINOLEIC ACID
     Dosage: 1 EVERY .3 DAYS
     Route: 048
  251. LINOLEIC ACID [Suspect]
     Active Substance: LINOLEIC ACID
     Dosage: 1 EVERY .3 DAYS
     Route: 048
  252. LINOLEIC ACID [Suspect]
     Active Substance: LINOLEIC ACID
     Dosage: 1 EVERY .3 DAYS
  253. LACTOBACILLUS RHAMNOSUS [Suspect]
     Active Substance: LACTOBACILLUS RHAMNOSUS
     Indication: Product used for unknown indication
     Dosage: 1 EVERY .3 DAYS
  254. LACTOBACILLUS RHAMNOSUS [Suspect]
     Active Substance: LACTOBACILLUS RHAMNOSUS
     Dosage: 1 EVERY .3 DAYS
     Route: 065
  255. LACTOBACILLUS RHAMNOSUS [Suspect]
     Active Substance: LACTOBACILLUS RHAMNOSUS
     Dosage: 1 EVERY .3 DAYS
     Route: 065
  256. LACTOBACILLUS RHAMNOSUS [Suspect]
     Active Substance: LACTOBACILLUS RHAMNOSUS
     Dosage: 1 EVERY .3 DAYS
  257. LACTOBACILLUS CASEI [Suspect]
     Active Substance: LACTOBACILLUS CASEI
     Indication: Product used for unknown indication
     Dosage: UNK, TID (1 EVERY .3 DAYS)
  258. LACTOBACILLUS CASEI [Suspect]
     Active Substance: LACTOBACILLUS CASEI
     Dosage: UNK, TID (1 EVERY .3 DAYS)
     Route: 065
  259. LACTOBACILLUS CASEI [Suspect]
     Active Substance: LACTOBACILLUS CASEI
     Dosage: UNK, TID (1 EVERY .3 DAYS)
     Route: 065
  260. LACTOBACILLUS CASEI [Suspect]
     Active Substance: LACTOBACILLUS CASEI
     Dosage: UNK, TID (1 EVERY .3 DAYS)
  261. .ALPHA.-TOCOPHEROL, D- [Suspect]
     Active Substance: .ALPHA.-TOCOPHEROL, D-
     Indication: Product used for unknown indication
     Dosage: 7.5 MILLIGRAM
  262. .ALPHA.-TOCOPHEROL, D- [Suspect]
     Active Substance: .ALPHA.-TOCOPHEROL, D-
     Dosage: 7.5 MILLIGRAM
     Route: 048
  263. .ALPHA.-TOCOPHEROL, D- [Suspect]
     Active Substance: .ALPHA.-TOCOPHEROL, D-
     Dosage: 7.5 MILLIGRAM
     Route: 048
  264. .ALPHA.-TOCOPHEROL, D- [Suspect]
     Active Substance: .ALPHA.-TOCOPHEROL, D-
     Dosage: 7.5 MILLIGRAM
  265. OMEGA 3 [Suspect]
     Active Substance: CAPSAICIN
     Indication: Product used for unknown indication
     Dosage: UNK
  266. OMEGA 3 [Suspect]
     Active Substance: CAPSAICIN
     Dosage: UNK
     Route: 065
  267. OMEGA 3 [Suspect]
     Active Substance: CAPSAICIN
     Dosage: UNK
     Route: 065
  268. OMEGA 3 [Suspect]
     Active Substance: CAPSAICIN
     Dosage: UNK
  269. OMEGA 3 [Suspect]
     Active Substance: CAPSAICIN
     Indication: Product used for unknown indication
     Dosage: 2 DOSAGE FORM, BID, (2 EVERY 1 DAY)
  270. OMEGA 3 [Suspect]
     Active Substance: CAPSAICIN
     Dosage: 2 DOSAGE FORM, BID, (2 EVERY 1 DAY)
     Route: 048
  271. OMEGA 3 [Suspect]
     Active Substance: CAPSAICIN
     Dosage: 2 DOSAGE FORM, BID, (2 EVERY 1 DAY)
     Route: 048
  272. OMEGA 3 [Suspect]
     Active Substance: CAPSAICIN
     Dosage: 2 DOSAGE FORM, BID, (2 EVERY 1 DAY)
  273. VITAMIN A [Suspect]
     Active Substance: VITAMIN A
     Indication: Product used for unknown indication
     Dosage: UNK
     Route: 048
  274. VITAMIN A [Suspect]
     Active Substance: VITAMIN A
     Dosage: UNK
  275. VITAMIN A [Suspect]
     Active Substance: VITAMIN A
     Dosage: UNK
  276. VITAMIN A [Suspect]
     Active Substance: VITAMIN A
     Dosage: UNK
     Route: 048
  277. VITAMIN A [Suspect]
     Active Substance: VITAMIN A
     Dosage: 188 MILLIGRAM, BID (2 EVERY 1 DAY)
     Route: 065
  278. VITAMIN A [Suspect]
     Active Substance: VITAMIN A
     Dosage: 188 MILLIGRAM, BID (2 EVERY 1 DAY)
  279. VITAMIN A [Suspect]
     Active Substance: VITAMIN A
     Dosage: 188 MILLIGRAM, BID (2 EVERY 1 DAY)
  280. VITAMIN A [Suspect]
     Active Substance: VITAMIN A
     Dosage: 188 MILLIGRAM, BID (2 EVERY 1 DAY)
     Route: 065

REACTIONS (6)
  - Drug-induced liver injury [Recovering/Resolving]
  - Hepatic encephalopathy [Recovering/Resolving]
  - Hepatic necrosis [Recovering/Resolving]
  - Hepatic cirrhosis [Recovering/Resolving]
  - Hepatotoxicity [Recovering/Resolving]
  - Drug interaction [Recovering/Resolving]
